FAERS Safety Report 15561709 (Version 1)
Quarter: 2018Q4

REPORT INFORMATION
  Report Type: Spontaneous
  Country: US (occurrence: US)
  Receive Date: 20181024
  Receipt Date: 20181024
  Transmission Date: 20190205
  Serious: Yes (Hospitalization)
  Sender: FDA-Public Use
  Company Number: None

PATIENT
  Age: 67 Year
  Sex: Female

DRUGS (2)
  1. LETAIRIS [Concomitant]
     Active Substance: AMBRISENTAN
  2. SILDENAFIL TAB 20 MG [Suspect]
     Active Substance: SILDENAFIL
     Indication: COR PULMONALE
     Route: 048
     Dates: start: 20180530

REACTIONS (1)
  - Pneumonia [None]

NARRATIVE: CASE EVENT DATE: 20181015
